FAERS Safety Report 9501095 (Version 2)
Quarter: 2014Q1

REPORT INFORMATION
  Report Type: Spontaneous
  Country: US (occurrence: None)
  Receive Date: 20130118
  Receipt Date: 20140128
  Transmission Date: 20141002
  Serious: Yes (Other)
  Sender: FDA-Public Use
  Company Number: A-US2012-70118

PATIENT
  Age: 73 Year
  Sex: Female

DRUGS (7)
  1. TRACLEER [Suspect]
     Indication: PULMONARY ARTERIAL HYPERTENSION
     Route: 048
     Dates: start: 20120131, end: 20120229
  2. COUMADIN (WARFARIN SODIUM) [Concomitant]
  3. NORVASC (AMLODIPINE BESILATE) [Concomitant]
  4. PRILOSEC (OMEPRAZOLE) [Concomitant]
  5. ALDACTONE (POTASSIUM CANRENOATE) [Concomitant]
  6. TRAZODONE (TRAZODONE HYDROCHLORIDE) [Concomitant]
  7. LEVOTHYROXINE [Suspect]

REACTIONS (5)
  - Liver function test abnormal [None]
  - Aspartate aminotransferase increased [None]
  - Alanine aminotransferase increased [None]
  - Asthenia [None]
  - Nausea [None]
